FAERS Safety Report 7789853-7 (Version None)
Quarter: 2011Q3

REPORT INFORMATION
  Report Type: 
  Country: None (occurrence: None)
  Receive Date: 20110930
  Receipt Date: 20110328
  Transmission Date: 20111222
  Serious: No
  Sender: FDA-Public Use
  Company Number: US-ASTRAZENECA-2011SE17819

PATIENT
  Age: 63 Year
  Sex: Female
  Weight: 59 kg

DRUGS (4)
  1. ANASTRAZOLE [Suspect]
     Indication: BREAST CANCER
     Route: 048
  2. ARIMIDEX [Suspect]
     Indication: BREAST CANCER
     Route: 048
     Dates: start: 20090101
  3. LIPITOR [Concomitant]
     Indication: BLOOD CHOLESTEROL INCREASED
     Dosage: DAILY
     Route: 048
  4. TOPROL-XL [Concomitant]
     Indication: HYPERTENSION

REACTIONS (6)
  - HOT FLUSH [None]
  - ALOPECIA [None]
  - DRY SKIN [None]
  - DEPRESSION [None]
  - SKIN WRINKLING [None]
  - LIMB DISCOMFORT [None]
